FAERS Safety Report 17250370 (Version 2)
Quarter: 2020Q1

REPORT INFORMATION
  Report Type: Spontaneous
  Country: US (occurrence: US)
  Receive Date: 20200109
  Receipt Date: 20200120
  Transmission Date: 20200409
  Serious: Yes (Other)
  Sender: FDA-Public Use
  Company Number: US-AMGEN INC.-USASP2020000382

PATIENT
  Age: 42 Year
  Sex: Female

DRUGS (7)
  1. CYMBALTA [Suspect]
     Active Substance: DULOXETINE HYDROCHLORIDE
     Indication: MUSCULOSKELETAL INJURY
     Dosage: UNK
     Route: 065
  2. DECADRON [Suspect]
     Active Substance: DEXAMETHASONE
     Indication: DYSPNOEA
     Dosage: UNK
     Route: 065
  3. DECADRON [Suspect]
     Active Substance: DEXAMETHASONE
     Indication: PRURITUS
  4. CORTISONE [Suspect]
     Active Substance: CORTISONE
     Indication: PRODUCT USED FOR UNKNOWN INDICATION
     Dosage: UNK
     Route: 065
  5. BOTOX [Concomitant]
     Active Substance: ONABOTULINUMTOXINA
     Dosage: UNK
     Dates: start: 2012
  6. AIMOVIG [Suspect]
     Active Substance: ERENUMAB-AOOE
     Indication: BRAIN INJURY
     Dosage: 70 MILLIGRAM
     Route: 065
     Dates: start: 20191220, end: 20191220
  7. FEMQUIL [Concomitant]
     Indication: HOT FLUSH
     Dosage: UNK

REACTIONS (13)
  - Urinary retention [Recovered/Resolved]
  - Drug hypersensitivity [Recovered/Resolved]
  - Migraine [Recovered/Resolved]
  - Muscle atrophy [Recovered/Resolved]
  - Constipation [Recovered/Resolved]
  - Cataract [Not Recovered/Not Resolved]
  - Fluid retention [Recovered/Resolved]
  - Weight increased [Recovered/Resolved]
  - Product administered at inappropriate site [Unknown]
  - Pain [Recovered/Resolved]
  - Hot flush [Recovered/Resolved]
  - Hyperhidrosis [Recovered/Resolved]
  - Muscle spasms [Recovered/Resolved]

NARRATIVE: CASE EVENT DATE: 201912
